FAERS Safety Report 10756990 (Version 1)
Quarter: 2015Q1

REPORT INFORMATION
  Report Type: Spontaneous
  Country: JP (occurrence: JP)
  Receive Date: 20150203
  Receipt Date: 20150203
  Transmission Date: 20150721
  Serious: Yes (Death, Hospitalization)
  Sender: FDA-Public Use
  Company Number: PHHY2015JP011094

PATIENT
  Age: 74 Year
  Sex: Female

DRUGS (4)
  1. CARBOPLATIN. [Suspect]
     Active Substance: CARBOPLATIN
     Indication: METASTATIC MALIGNANT MELANOMA
     Route: 065
  2. PACLITAXEL. [Suspect]
     Active Substance: PACLITAXEL
     Indication: METASTATIC MALIGNANT MELANOMA
     Dosage: 100 MG/M2, UNK
     Route: 065
  3. PACLITAXEL. [Suspect]
     Active Substance: PACLITAXEL
     Indication: METASTASES TO LUNG
  4. CARBOPLATIN. [Suspect]
     Active Substance: CARBOPLATIN
     Indication: METASTASES TO LUNG

REACTIONS (15)
  - Gastrointestinal necrosis [Unknown]
  - Peritonitis [Unknown]
  - Urine output decreased [Unknown]
  - Arterial disorder [Unknown]
  - Shock [Unknown]
  - Abdominal distension [Unknown]
  - Ileus [Unknown]
  - Vomiting [Unknown]
  - Depressed level of consciousness [Unknown]
  - Metastatic malignant melanoma [Fatal]
  - Intestinal ischaemia [Unknown]
  - Intestinal congestion [Unknown]
  - Abdominal pain [Unknown]
  - Dehydration [Unknown]
  - Intestinal haemorrhage [Unknown]
